FAERS Safety Report 25801387 (Version 1)
Quarter: 2025Q3

REPORT INFORMATION
  Report Type: Spontaneous
  Country: ID (occurrence: ID)
  Receive Date: 20250915
  Receipt Date: 20250915
  Transmission Date: 20251021
  Serious: Yes (Life-Threatening, Hospitalization, Other)
  Sender: UNICHEM
  Company Number: ID-UNICHEM LABORATORIES LIMITED-UNI-2025-ID-003203

PATIENT

DRUGS (1)
  1. BISOPROLOL [Suspect]
     Active Substance: BISOPROLOL
     Indication: Palpitations
     Route: 065

REACTIONS (1)
  - BRASH syndrome [Recovering/Resolving]
